FAERS Safety Report 8427607-9 (Version None)
Quarter: 2012Q2

REPORT INFORMATION
  Report Type: 
  Country: None (occurrence: None)
  Receive Date: 20120323
  Receipt Date: 20111128
  Transmission Date: 20120825
  Serious: Yes (Hospitalization)
  Sender: FDA-Public Use
  Company Number: 163-21880-11113944

PATIENT
  Age: 67 Year
  Sex: Female

DRUGS (4)
  1. MS CONTIN [Concomitant]
  2. REVLIMID [Suspect]
     Indication: MULTIPLE MYELOMA
     Dosage: 25 MG, 5 IN 1 D, PO  TEMPORARILY INTERRUPTED
     Route: 048
     Dates: start: 20111103
  3. FENTANYL-100 [Concomitant]
  4. MORPHINE SULFATE [Concomitant]

REACTIONS (2)
  - FULL BLOOD COUNT DECREASED [None]
  - PYREXIA [None]
